FAERS Safety Report 25679975 (Version 1)
Quarter: 2025Q3

REPORT INFORMATION
  Report Type: Spontaneous
  Country: CH (occurrence: CH)
  Receive Date: 20250814
  Receipt Date: 20250814
  Transmission Date: 20251020
  Serious: Yes (Hospitalization)
  Sender: ROCHE
  Company Number: CH-CHEPLA-2025009661

PATIENT

DRUGS (3)
  1. VALCYTE [Suspect]
     Active Substance: VALGANCICLOVIR HYDROCHLORIDE
     Indication: Product used for unknown indication
     Route: 050
  2. LETERMOVIR [Concomitant]
     Active Substance: LETERMOVIR
     Route: 050
  3. FILGRASTIM [Concomitant]
     Active Substance: FILGRASTIM
     Route: 050

REACTIONS (4)
  - Neutropenia [Unknown]
  - Transplant dysfunction [Unknown]
  - Bronchostenosis [Unknown]
  - General physical health deterioration [Unknown]

NARRATIVE: CASE EVENT DATE: 20250301
